FAERS Safety Report 6159406-5 (Version None)
Quarter: 2009Q2

REPORT INFORMATION
  Report Type: 
  Country: None (occurrence: None)
  Receive Date: 20090417
  Receipt Date: 20090410
  Transmission Date: 20091009
  Serious: Yes (Hospitalization, Other)
  Sender: FDA-Public Use
  Company Number: PHEH2009US02967

PATIENT
  Sex: Male
  Weight: 72.7 kg

DRUGS (6)
  1. ENTACAPONE [Suspect]
     Indication: PARKINSON'S DISEASE
     Dosage: 200 MG, FIVE TIMES DAILY
     Route: 048
  2. CARBIDOPA + LEVODOPA [Suspect]
     Indication: PARKINSON'S DISEASE
     Dosage: 25/100 MG, 1 1/2 TABLETS FIVE TIMES A DAY
     Route: 048
     Dates: start: 19980101
  3. AMANTADINE HCL [Concomitant]
     Indication: PARKINSON'S DISEASE
     Dosage: 100 MG DAILY
     Route: 048
  4. ROPINIROLE [Concomitant]
     Indication: PARKINSON'S DISEASE
     Dosage: .25 MG; 2 TABLETS QAM; 1 TABLET QID
     Route: 048
  5. LOVASTATIN [Concomitant]
     Indication: HYPERLIPIDAEMIA
     Dosage: 20 MG WITH SUPPER
     Route: 048
  6. DOXAZOSIN MESYLATE [Concomitant]
     Indication: BENIGN PROSTATIC HYPERPLASIA
     Dosage: 1 MG QHS
     Route: 048

REACTIONS (5)
  - CONVULSION [None]
  - CREATININE RENAL CLEARANCE DECREASED [None]
  - LOSS OF CONSCIOUSNESS [None]
  - RENAL ARTERY STENOSIS [None]
  - RENAL IMPAIRMENT [None]
